FAERS Safety Report 11090402 (Version 1)
Quarter: 2015Q2

REPORT INFORMATION
  Report Type: Spontaneous
  Country: US (occurrence: None)
  Receive Date: 20150504
  Receipt Date: 20150504
  Transmission Date: 20150821
  Serious: Yes (Other)
  Sender: FDA-Public Use
  Company Number: None

PATIENT
  Age: 51 Year
  Sex: Female
  Weight: 56.7 kg

DRUGS (1)
  1. EQUATE ONE DAILY WOMEN^S HEALTH [Suspect]
     Active Substance: MINERALS\VITAMINS
     Indication: VITAMIN SUPPLEMENTATION
     Dosage: 1 PILL
     Route: 048
     Dates: start: 20150501, end: 20150501

REACTIONS (7)
  - Abdominal pain upper [None]
  - Incoherent [None]
  - Feeling abnormal [None]
  - Thirst [None]
  - Crying [None]
  - Presyncope [None]
  - Asthenia [None]

NARRATIVE: CASE EVENT DATE: 20150501
